FAERS Safety Report 8839310 (Version 2)
Quarter: 2012Q4

REPORT INFORMATION
  Report Type: 
  Country: US (occurrence: US)
  Receive Date: 20121015
  Receipt Date: 20121022
  Transmission Date: 20130627
  Serious: Yes (Hospitalization)
  Sender: FDA-Public Use
  Company Number: US-SANOFI-AVENTIS-2012SA073140

PATIENT
  Age: 9 Year
  Sex: Male

DRUGS (3)
  1. LANTUS SOLOSTAR [Suspect]
     Indication: DIABETES
     Route: 058
  2. SOLOSTAR [Suspect]
     Indication: DIABETES
  3. HUMALOG [Suspect]
     Indication: DIABETES
     Route: 065

REACTIONS (5)
  - Ketoacidosis [Unknown]
  - Hyperglycaemia [Unknown]
  - Sinusitis [Unknown]
  - Blood glucose increased [Unknown]
  - Hyperglycaemia [Unknown]
